FAERS Safety Report 14142826 (Version 1)
Quarter: 2017Q4

REPORT INFORMATION
  Report Type: Report from Study
  Country: US (occurrence: US)
  Receive Date: 20171030
  Receipt Date: 20171030
  Transmission Date: 20180321
  Serious: Yes (Hospitalization, Other)
  Sender: FDA-Public Use
  Company Number: US-TAKEDA-2017MPI003445

PATIENT
  Age: 57 Year
  Sex: Male
  Weight: 70.3 kg

DRUGS (1)
  1. IXAZOMIB [Suspect]
     Active Substance: IXAZOMIB
     Indication: PROPHYLAXIS AGAINST GRAFT VERSUS HOST DISEASE
     Dosage: 4 MG, 1/WEEK
     Route: 065
     Dates: start: 20170323, end: 20170413

REACTIONS (3)
  - Hyponatraemia [Recovered/Resolved]
  - Chronic kidney disease [Recovering/Resolving]
  - Lymphoplasmacytoid lymphoma/immunocytoma [Recovered/Resolved]

NARRATIVE: CASE EVENT DATE: 20170411
